FAERS Safety Report 9681690 (Version 4)
Quarter: 2017Q1

REPORT INFORMATION
  Report Type: Spontaneous
  Country: US (occurrence: US)
  Receive Date: 20131111
  Receipt Date: 20170116
  Transmission Date: 20170429
  Serious: Yes (Hospitalization, Other)
  Sender: FDA-Public Use
  Company Number: US-BAYER-2013-133951

PATIENT
  Age: 22 Year
  Sex: Female

DRUGS (2)
  1. MIRENA [Suspect]
     Active Substance: LEVONORGESTREL
     Indication: CONTRACEPTION
     Dosage: 20 MCG/24HR, CONT
     Route: 015
     Dates: start: 20070803, end: 20101027
  2. MIRENA [Suspect]
     Active Substance: LEVONORGESTREL
     Indication: CONTRACEPTION
     Dosage: 20 MG/24HR, CONT
     Route: 015
     Dates: start: 20120110

REACTIONS (8)
  - Device issue [None]
  - Abdominal pain lower [None]
  - Uterine perforation [None]
  - Device difficult to use [None]
  - Injury [None]
  - Vaginal haemorrhage [None]
  - Pain [None]
  - Pelvic pain [None]

NARRATIVE: CASE EVENT DATE: 201008
